FAERS Safety Report 16236210 (Version 2)
Quarter: 2019Q2

REPORT INFORMATION
  Report Type: Report from Study
  Country: None (occurrence: CL)
  Receive Date: 20190425
  Receipt Date: 20190514
  Transmission Date: 20190711
  Serious: Yes (Hospitalization, Other)
  Sender: FDA-Public Use
  Company Number: CL-ABBVIE-19K-034-2749900-00

PATIENT
  Age: 63 Year
  Sex: Male
  Weight: 65 kg

DRUGS (1)
  1. HUMIRA [Suspect]
     Active Substance: ADALIMUMAB
     Indication: RHEUMATOID ARTHRITIS
     Route: 058
     Dates: start: 20180216

REACTIONS (11)
  - Viral infection [Unknown]
  - Fluid retention [Unknown]
  - Surgical failure [Unknown]
  - Bacterial infection [Unknown]
  - Immunosuppression [Unknown]
  - Acne [Unknown]
  - Inflammation [Recovering/Resolving]
  - Decreased appetite [Unknown]
  - Peripheral swelling [Unknown]
  - Weight decreased [Unknown]
  - Wound [Unknown]

NARRATIVE: CASE EVENT DATE: 201904
